FAERS Safety Report 4810468-4 (Version None)
Quarter: 2005Q4

REPORT INFORMATION
  Report Type: 
  Country: None (occurrence: None)
  Receive Date: 20051024
  Receipt Date: 20051011
  Transmission Date: 20060501
  Serious: Yes (Death)
  Sender: FDA-Public Use
  Company Number: 051017-0001014

PATIENT
  Age: 35 Year

DRUGS (2)
  1. METHAMPHETAMINE HCL [Suspect]
     Dates: end: 20040101
  2. COCAINE (COCAINE) [Suspect]
     Dates: end: 20040101

REACTIONS (2)
  - CARDIAC ARREST [None]
  - RESPIRATORY ARREST [None]
